FAERS Safety Report 11549410 (Version 1)
Quarter: 2015Q3

REPORT INFORMATION
  Report Type: Spontaneous
  Country: US (occurrence: US)
  Receive Date: 20150924
  Receipt Date: 20150924
  Transmission Date: 20151125
  Serious: No
  Sender: FDA-Public Use
  Company Number: US-INCYTE CORPORATION-2015IN003229

PATIENT
  Sex: Female

DRUGS (2)
  1. ASACOL HD [Concomitant]
     Active Substance: MESALAMINE
  2. JAKAFI [Suspect]
     Active Substance: RUXOLITINIB
     Dosage: 10 MG, BID
     Route: 048
     Dates: start: 201506

REACTIONS (3)
  - Headache [Unknown]
  - Abdominal pain upper [Unknown]
  - Migraine [Unknown]
